FAERS Safety Report 21419741 (Version 1)
Quarter: 2022Q4

REPORT INFORMATION
  Report Type: Spontaneous
  Country: BR (occurrence: BR)
  Receive Date: 20221006
  Receipt Date: 20221006
  Transmission Date: 20230113
  Serious: Yes (Other)
  Sender: FDA-Public Use
  Company Number: BR-CELLTRION INC.-2022BR016029

PATIENT

DRUGS (8)
  1. INFLIXIMAB [Suspect]
     Active Substance: INFLIXIMAB
     Indication: Sjogren^s syndrome
     Dosage: 3 AMPOULES EVERY 2 MONTHS
     Route: 042
  2. INFLIXIMAB [Suspect]
     Active Substance: INFLIXIMAB
     Indication: Rheumatoid arthritis
  3. HYDROXYCHLOROQUINE SULFATE [Concomitant]
     Active Substance: HYDROXYCHLOROQUINE SULFATE
     Indication: Sjogren^s syndrome
     Dosage: 1 PILL PER DAY
     Route: 048
     Dates: start: 2019
  4. LOSARTAN [Concomitant]
     Active Substance: LOSARTAN
     Indication: Hypertension
     Dosage: 50 MG, 2 PILLS PER DAY
     Route: 048
     Dates: start: 2016
  5. CIPROFIBRATE [Concomitant]
     Active Substance: CIPROFIBRATE
     Dosage: 1 PILL PER DAY
     Route: 048
     Dates: start: 202207
  6. DULOXETINE HYDROCHLORIDE [Concomitant]
     Active Substance: DULOXETINE HYDROCHLORIDE
     Indication: Depression
     Dosage: 1 PILL PER DAY
     Route: 048
     Dates: start: 2019
  7. PREGABALIN [Concomitant]
     Active Substance: PREGABALIN
     Indication: Pain
     Dosage: 1 PILL PER DAY IN THE  MORNING
     Route: 048
     Dates: start: 202206
  8. PREGABALIN [Concomitant]
     Active Substance: PREGABALIN
     Indication: Pain
     Dosage: 1 PILL PER DAY AT NIGHT
     Route: 048
     Dates: start: 2019

REACTIONS (5)
  - Sjogren^s syndrome [Unknown]
  - Pain [Unknown]
  - Fatigue [Unknown]
  - Off label use [Unknown]
  - Overdose [Unknown]
